FAERS Safety Report 7542461-5 (Version None)
Quarter: 2011Q2

REPORT INFORMATION
  Report Type: 
  Country: None (occurrence: None)
  Receive Date: 20110606
  Receipt Date: 20110520
  Transmission Date: 20111010
  Serious: Yes (Hospitalization)
  Sender: FDA-Public Use
  Company Number: DSA_46765_2011

PATIENT
  Sex: Male
  Weight: 54.4316 kg

DRUGS (2)
  1. XENAZINE [Suspect]
     Indication: TOURETTE'S DISORDER
     Dosage: (12.5 MG BID ORAL), (1/2 OF A 12.5 MG TABLET, TWICE DAILY, FOR 2 WEEKS ORAL)
     Route: 048
     Dates: start: 20101201, end: 20110201
  2. XENAZINE [Suspect]
     Indication: TOURETTE'S DISORDER
     Dosage: (12.5 MG BID ORAL), (1/2 OF A 12.5 MG TABLET, TWICE DAILY, FOR 2 WEEKS ORAL)
     Route: 048
     Dates: start: 20101201, end: 20101201

REACTIONS (3)
  - ANXIETY [None]
  - DEPRESSION [None]
  - CONDITION AGGRAVATED [None]
